FAERS Safety Report 10924139 (Version 1)
Quarter: 2015Q1

REPORT INFORMATION
  Report Type: Spontaneous
  Country: US (occurrence: None)
  Receive Date: 20150316
  Receipt Date: 20150316
  Transmission Date: 20150721
  Serious: Yes (Hospitalization)
  Sender: FDA-Public Use
  Company Number: None

PATIENT
  Age: 57 Year
  Sex: Female
  Weight: 65.8 kg

DRUGS (1)
  1. MOXIFLOXACIN [Suspect]
     Active Substance: MOXIFLOXACIN
     Indication: INFECTION
     Route: 042
     Dates: start: 20150315, end: 20150315

REACTIONS (4)
  - Urticaria [None]
  - Rash [None]
  - Pruritus [None]
  - Pain [None]

NARRATIVE: CASE EVENT DATE: 20150315
